FAERS Safety Report 6815397-2 (Version None)
Quarter: 2010Q3

REPORT INFORMATION
  Report Type: 
  Country: None (occurrence: None)
  Receive Date: 20100701
  Receipt Date: 20100701
  Transmission Date: 20110219
  Serious: Yes (Other)
  Sender: FDA-Public Use
  Company Number: None

PATIENT
  Age: 59 Year
  Sex: Female
  Weight: 56.8 kg

DRUGS (2)
  1. ACUVAIL [Suspect]
     Indication: OPHTHALMOPLEGIC MIGRAINE
     Dosage: ONE DROP BID EACH EYE
     Route: 047
     Dates: start: 20100604, end: 20100620
  2. DICLOFENAC SODIUM [Suspect]
     Indication: OPHTHALMOPLEGIC MIGRAINE
     Dosage: ONE DROP BID EACH EYE
     Route: 047
     Dates: start: 20100427, end: 20100530

REACTIONS (3)
  - BURNING SENSATION [None]
  - DRUG INEFFECTIVE [None]
  - OPHTHALMOPLEGIC MIGRAINE [None]
